FAERS Safety Report 8030902-9 (Version None)
Quarter: 2012Q1

REPORT INFORMATION
  Report Type: 
  Country: None (occurrence: None)
  Receive Date: 20120109
  Receipt Date: 20120103
  Transmission Date: 20120608
  Serious: Yes (Hospitalization, Disabling, Other)
  Sender: FDA-Public Use
  Company Number: DE-ROCHE-1015823

PATIENT
  Sex: Male
  Weight: 80 kg

DRUGS (6)
  1. CLEMASTINE FUMARATE [Concomitant]
     Route: 042
     Dates: start: 20110511, end: 20111004
  2. BENDAMUSTINE [Concomitant]
     Indication: NON-HODGKIN'S LYMPHOMA
     Route: 042
     Dates: start: 20110511, end: 20111004
  3. PREDNISOLONE [Concomitant]
     Route: 042
     Dates: start: 20110511, end: 20111004
  4. ACETAMINOPHEN [Concomitant]
     Route: 048
     Dates: start: 20110511, end: 20111004
  5. RANITIDINE HCL [Concomitant]
     Route: 042
     Dates: start: 20110511, end: 20111004
  6. MABTHERA [Suspect]
     Indication: B-CELL LYMPHOMA
     Dosage: 6 CYCLES OF RITUXIMAB
     Route: 042
     Dates: start: 20110511, end: 20111004

REACTIONS (4)
  - PERIPHERAL PARALYSIS [None]
  - VITH NERVE PARALYSIS [None]
  - AMYOTROPHY [None]
  - PERIPHERAL NERVE LESION [None]
